FAERS Safety Report 9269706 (Version 1)
Quarter: 2013Q2

REPORT INFORMATION
  Report Type: Spontaneous
  Country: US (occurrence: US)
  Receive Date: 20130503
  Receipt Date: 20130503
  Transmission Date: 20140414
  Serious: Yes (Hospitalization)
  Sender: FDA-Public Use
  Company Number: US-BAYER-2013-054025

PATIENT
  Age: 29 Year
  Sex: Female
  Weight: 51 kg

DRUGS (11)
  1. YAZ [Suspect]
  2. YASMIN [Suspect]
  3. BUSPAR [Concomitant]
  4. SYNTHROID [Concomitant]
  5. METFORMIN [Concomitant]
     Indication: TYPE 2 DIABETES MELLITUS
  6. RANITIDINE [Concomitant]
  7. CYCLOBENZAPRINE [Concomitant]
  8. SULINDAC [Concomitant]
  9. DULOXETINE [Concomitant]
  10. MONONESSA-28 [Concomitant]
  11. WELLBUTRIN [Concomitant]

REACTIONS (2)
  - Subclavian vein thrombosis [None]
  - Thrombophlebitis superficial [None]
